FAERS Safety Report 9871445 (Version 1)
Quarter: 2014Q1

REPORT INFORMATION
  Report Type: Spontaneous
  Country: US (occurrence: US)
  Receive Date: 20140205
  Receipt Date: 20140205
  Transmission Date: 20141002
  Serious: No
  Sender: FDA-Public Use
  Company Number: US-GILEAD-2014-0093734

PATIENT
  Age: 58 Year
  Sex: Male

DRUGS (3)
  1. SOVALDI [Suspect]
     Indication: CHRONIC HEPATITIS C
     Dosage: 400 MG, UNK
     Route: 065
     Dates: start: 20140117
  2. RIBAVIRIN [Concomitant]
  3. PEGASYS [Concomitant]

REACTIONS (10)
  - Upper-airway cough syndrome [Unknown]
  - Sinus headache [Unknown]
  - Arthralgia [Unknown]
  - Disturbance in attention [Unknown]
  - Dyspnoea [Unknown]
  - Fatigue [Unknown]
  - Headache [Unknown]
  - Insomnia [Unknown]
  - Decreased appetite [Unknown]
  - Myalgia [Unknown]
